FAERS Safety Report 8098240-6 (Version None)
Quarter: 2012Q1

REPORT INFORMATION
  Report Type: 
  Country: None (occurrence: None)
  Receive Date: 20120128
  Receipt Date: 20110808
  Transmission Date: 20120608
  Serious: No
  Sender: FDA-Public Use
  Company Number: US-ABBOTT-11P-163-0844590-00

PATIENT
  Age: 45 Year
  Sex: Female

DRUGS (10)
  1. CRESTOR [Concomitant]
     Indication: LIPIDS
  2. SYNTHROID [Concomitant]
     Indication: HYPOTHYROIDISM
  3. CORZIDE [Concomitant]
     Indication: HYPERTENSION
     Dosage: 80/5MG DAILY
  4. HUMIRA [Suspect]
     Indication: RHEUMATOID ARTHRITIS
     Dates: start: 20060501
  5. PREDNISONE [Concomitant]
     Indication: RHEUMATOID ARTHRITIS
  6. AMERGE [Concomitant]
     Indication: MIGRAINE
  7. DIOVAN [Concomitant]
     Indication: HYPERTENSION
  8. DIFLORASONE DIACETATE [Concomitant]
     Indication: RASH
  9. TYLENOL W/ CODEINE NO. 3 [Concomitant]
     Indication: PAIN
     Dosage: 300/30
  10. SINGULAIR [Concomitant]
     Indication: ASTHMA

REACTIONS (6)
  - RASH [None]
  - INJECTION SITE REACTION [None]
  - BONE DENSITY ABNORMAL [None]
  - INJECTION SITE ERYTHEMA [None]
  - INJECTION SITE WARMTH [None]
  - INJECTION SITE SWELLING [None]
